FAERS Safety Report 25009357 (Version 3)
Quarter: 2025Q2

REPORT INFORMATION
  Report Type: Spontaneous
  Country: US (occurrence: US)
  Receive Date: 20250225
  Receipt Date: 20250422
  Transmission Date: 20250717
  Serious: Yes (Other)
  Sender: PFIZER
  Company Number: US-MLMSERVICE-20250215-PI407588-00180-2

PATIENT
  Sex: Female

DRUGS (5)
  1. INDOMETHACIN [Suspect]
     Active Substance: INDOMETHACIN
     Indication: Headache
     Dosage: 25 MG, 1X/DAY
  2. INDOMETHACIN [Suspect]
     Active Substance: INDOMETHACIN
     Indication: Migraine
  3. INDOMETHACIN [Suspect]
     Active Substance: INDOMETHACIN
     Indication: Hypnic headache
  4. INDOMETHACIN [Suspect]
     Active Substance: INDOMETHACIN
     Indication: Chronic paroxysmal hemicrania
  5. SUMATRIPTAN [Concomitant]
     Active Substance: SUMATRIPTAN
     Indication: Migraine

REACTIONS (4)
  - Hyperkalaemia [Unknown]
  - Off label use [Unknown]
  - Drug ineffective for unapproved indication [Unknown]
  - Off label use [Unknown]
